FAERS Safety Report 8222622-2 (Version None)
Quarter: 2012Q1

REPORT INFORMATION
  Report Type: 
  Country: None (occurrence: None)
  Receive Date: 20120315
  Receipt Date: 20120306
  Transmission Date: 20120608
  Serious: Yes (Hospitalization)
  Sender: FDA-Public Use
  Company Number: 2012SP001368

PATIENT
  Age: 37 Year
  Sex: Male
  Weight: 89.4 kg

DRUGS (5)
  1. LORAZEPAM [Concomitant]
  2. NICOTINE [Concomitant]
  3. ASENAPINE (ASENAPINE /05706901/) [Suspect]
     Indication: SCHIZOPHRENIA
     Dosage: SL; 10 MG;SL
     Route: 060
     Dates: start: 20110504, end: 20110614
  4. ASENAPINE (ASENAPINE /05706901/) [Suspect]
     Indication: SCHIZOPHRENIA
     Dosage: SL; 10 MG;SL
     Route: 060
     Dates: start: 20110614
  5. ZOLPIDEM [Concomitant]

REACTIONS (4)
  - CAFFEINE CONSUMPTION [None]
  - DRUG INEFFECTIVE [None]
  - SCHIZOPHRENIA [None]
  - CONDITION AGGRAVATED [None]
